FAERS Safety Report 6124747-4 (Version None)
Quarter: 2009Q1

REPORT INFORMATION
  Report Type: 
  Country: None (occurrence: None)
  Receive Date: 20090319
  Receipt Date: 20090318
  Transmission Date: 20090719
  Serious: Yes (Death, Other)
  Sender: FDA-Public Use
  Company Number: GR-RB-012078-09

PATIENT
  Age: 57 Year
  Sex: Male

DRUGS (2)
  1. SUBUTEX [Suspect]
     Dosage: DOSE UNKNOWN
     Route: 048
     Dates: start: 20040101, end: 20090101
  2. SUBOXONE [Suspect]
     Route: 048
     Dates: start: 20090101

REACTIONS (4)
  - CONFUSIONAL STATE [None]
  - DEATH [None]
  - RESTLESSNESS [None]
  - SUBSTANCE ABUSE [None]
